FAERS Safety Report 25093769 (Version 4)
Quarter: 2025Q2

REPORT INFORMATION
  Report Type: Spontaneous
  Country: DE (occurrence: DE)
  Receive Date: 20250319
  Receipt Date: 20250428
  Transmission Date: 20250716
  Serious: Yes (Death)
  Sender: ASTELLAS
  Company Number: DE-ASTELLAS-2025-AER-015428

PATIENT
  Sex: Male

DRUGS (6)
  1. XOSPATA [Suspect]
     Active Substance: GILTERITINIB
     Indication: Acute myeloid leukaemia
     Route: 065
  2. XOSPATA [Suspect]
     Active Substance: GILTERITINIB
     Indication: FLT3 gene mutation
  3. DA-Midostaurin [Concomitant]
     Indication: Acute myeloid leukaemia
     Route: 065
  4. DA-Midostaurin [Concomitant]
     Indication: FLT3 gene mutation
  5. MEC [Concomitant]
     Indication: Acute myeloid leukaemia
     Route: 065
  6. MEC [Concomitant]
     Indication: FLT3 gene mutation

REACTIONS (2)
  - Acute myeloid leukaemia [Fatal]
  - Multiple-drug resistance [Fatal]

NARRATIVE: CASE EVENT DATE: 20250107
